FAERS Safety Report 17616886 (Version 1)
Quarter: 2020Q2

REPORT INFORMATION
  Report Type: Spontaneous
  Country: US (occurrence: US)
  Receive Date: 20200402
  Receipt Date: 20200402
  Transmission Date: 20200713
  Serious: Yes (Hospitalization)
  Sender: FDA-Public Use
  Company Number: None

PATIENT
  Sex: Female

DRUGS (15)
  1. AFINITOR [Suspect]
     Active Substance: EVEROLIMUS
     Indication: NEUROENDOCRINE TUMOUR
     Route: 048
     Dates: start: 20180730
  2. NORTRIPTYLINE [Concomitant]
     Active Substance: NORTRIPTYLINE
  3. ROPINIROLE. [Concomitant]
     Active Substance: ROPINIROLE
  4. VIT D [Concomitant]
     Active Substance: VITAMIN D NOS
  5. BUPROPION. [Concomitant]
     Active Substance: BUPROPION
  6. DOXYCYCLINE. [Concomitant]
     Active Substance: DOXYCYCLINE
  7. LEVOTHYROXINE. [Concomitant]
     Active Substance: LEVOTHYROXINE
  8. CEFDINIR. [Concomitant]
     Active Substance: CEFDINIR
  9. LOSARTAN. [Concomitant]
     Active Substance: LOSARTAN
  10. TRULICITY [Concomitant]
     Active Substance: DULAGLUTIDE
  11. XARELTO [Concomitant]
     Active Substance: RIVAROXABAN
  12. OMEPRAZOLE. [Concomitant]
     Active Substance: OMEPRAZOLE
  13. VENLAFAXINE [Concomitant]
     Active Substance: VENLAFAXINE HYDROCHLORIDE
  14. AMLODIPINE [Concomitant]
     Active Substance: AMLODIPINE BESYLATE
  15. PRAVASTATIN. [Concomitant]
     Active Substance: PRAVASTATIN

REACTIONS (2)
  - Therapy interrupted [None]
  - Pneumonia [None]
